FAERS Safety Report 19702990 (Version 1)
Quarter: 2021Q3

REPORT INFORMATION
  Report Type: Spontaneous
  Country: US (occurrence: US)
  Receive Date: 20210816
  Receipt Date: 20210816
  Transmission Date: 20211014
  Serious: No
  Sender: FDA-Public Use
  Company Number: US-STRONGBRIDGE BIOPHARMA-2021-STR-000249

PATIENT

DRUGS (1)
  1. KEVEYIS [Suspect]
     Active Substance: DICHLORPHENAMIDE
     Indication: FAMILIAL PERIODIC PARALYSIS
     Dosage: 50 MG, BID
     Route: 048
     Dates: start: 20210705

REACTIONS (6)
  - Asthenopia [Unknown]
  - Dental paraesthesia [Unknown]
  - Fatigue [Unknown]
  - Paraesthesia oral [Unknown]
  - Feeling abnormal [Unknown]
  - Paraesthesia [Unknown]
